FAERS Safety Report 9630242 (Version 2)
Quarter: 2013Q4

REPORT INFORMATION
  Report Type: Spontaneous
  Country: US (occurrence: US)
  Receive Date: 20131017
  Receipt Date: 20131106
  Transmission Date: 20140711
  Serious: Yes (Other)
  Sender: FDA-Public Use
  Company Number: US-RB-059532-13

PATIENT
  Sex: Male

DRUGS (3)
  1. BUPRENORPHINE GENERIC [Suspect]
     Indication: DRUG DEPENDENCE
     Dosage: SMALL, ROUND AND WHITE
     Route: 064
     Dates: start: 2012, end: 201212
  2. PERCOCET [Suspect]
     Indication: DRUG DEPENDENCE
     Dosage: DOSAGE UNKNOWN
     Route: 064
     Dates: start: 20111215, end: 2012
  3. IRON SUPPLEMENT [Concomitant]
     Indication: BLOOD IRON DECREASED
     Dosage: 1 TAB DAILY
     Route: 064
     Dates: start: 201207, end: 20120921

REACTIONS (2)
  - Foetal exposure during pregnancy [Recovered/Resolved]
  - Cryptorchism [Not Recovered/Not Resolved]
